FAERS Safety Report 4771677-6 (Version None)
Quarter: 2005Q3

REPORT INFORMATION
  Report Type: 
  Country: None (occurrence: None)
  Receive Date: 20050916
  Receipt Date: 20050527
  Transmission Date: 20060218
  Serious: Yes (Death, Hospitalization)
  Sender: FDA-Public Use
  Company Number: US-BRISTOL-MYERS SQUIBB COMPANY-12987699

PATIENT
  Age: 66 Year
  Sex: Male

DRUGS (7)
  1. MEGACE [Suspect]
     Indication: CACHEXIA
     Route: 048
     Dates: start: 20050503, end: 20050520
  2. PREDNISONE [Concomitant]
  3. COMPAZINE [Concomitant]
  4. FOLIC ACID [Concomitant]
  5. ZANTAC [Concomitant]
  6. HYDROCHLOROTHIAZIDE [Concomitant]
  7. DECADRON [Concomitant]

REACTIONS (4)
  - MALIGNANT NEOPLASM PROGRESSION [None]
  - METASTASES TO CENTRAL NERVOUS SYSTEM [None]
  - METASTASES TO LIVER [None]
  - PSYCHOTIC DISORDER [None]
